FAERS Safety Report 5245804-0 (Version None)
Quarter: 2007Q1

REPORT INFORMATION
  Report Type: 
  Country: None (occurrence: None)
  Receive Date: 20070216
  Receipt Date: 20070206
  Transmission Date: 20070707
  Serious: Yes (Life-Threatening, Hospitalization)
  Sender: FDA-Public Use
  Company Number: CIP06003007

PATIENT
  Age: 77 Year
  Sex: Female
  Weight: 76.2 kg

DRUGS (4)
  1. ASACOL [Suspect]
     Indication: COLITIS ULCERATIVE
     Dosage: 1200 MG THREE TIMES DAILY, ORAL
     Route: 048
  2. CLONIDINE [Concomitant]
  3. LOVASTATIN [Concomitant]
  4. PRINIVIL [Concomitant]

REACTIONS (4)
  - ABDOMINAL PAIN [None]
  - ACIDOSIS [None]
  - GASTROINTESTINAL HAEMORRHAGE [None]
  - MEDICATION RESIDUE [None]
